FAERS Safety Report 25886918 (Version 1)
Quarter: 2025Q4

REPORT INFORMATION
  Report Type: Spontaneous
  Country: EU (occurrence: EU)
  Receive Date: 20251006
  Receipt Date: 20251006
  Transmission Date: 20260117
  Serious: Yes (Hospitalization)
  Sender: SANDOZ
  Company Number: EU-009507513-2319601

PATIENT
  Age: 59 Year
  Sex: Male
  Weight: 120 kg

DRUGS (7)
  1. CARBOPLATIN [Suspect]
     Active Substance: CARBOPLATIN
     Indication: Non-small cell lung cancer
     Dosage: 675 MG, LINE 1
     Route: 065
     Dates: start: 20241113, end: 20250205
  2. PACLITAXEL [Suspect]
     Active Substance: PACLITAXEL
     Indication: Non-small cell lung cancer
     Dosage: 420 MG, LINE 1
     Route: 065
     Dates: start: 20241113, end: 20250205
  3. PEMBROLIZUMAB [Suspect]
     Active Substance: PEMBROLIZUMAB
     Indication: Non-small cell lung cancer
     Dosage: 200 MG, LINE 1
     Route: 065
     Dates: start: 20241113, end: 20250226
  4. Biso [Concomitant]
     Indication: Product used for unknown indication
     Dosage: 2.5 MG; 2-0-1
     Route: 065
  5. MELPERONE [Concomitant]
     Active Substance: MELPERONE
     Indication: Product used for unknown indication
     Dosage: 25 MG; 0-0-1
     Route: 065
  6. PANTOPRAZOLE SODIUM [Concomitant]
     Active Substance: PANTOPRAZOLE SODIUM
     Indication: Product used for unknown indication
     Dosage: 40 MG; 1-0-0
     Route: 065
  7. ACETAMINOPHEN [Concomitant]
     Active Substance: ACETAMINOPHEN
     Indication: Product used for unknown indication
     Dosage: 500 MG; 2-2-2
     Route: 065

REACTIONS (3)
  - Immune-mediated enterocolitis [Recovering/Resolving]
  - Pyrexia [Recovered/Resolved]
  - Leukopenia [Recovered/Resolved]

NARRATIVE: CASE EVENT DATE: 20250111
